FAERS Safety Report 6691016-3 (Version None)
Quarter: 2010Q2

REPORT INFORMATION
  Report Type: 
  Country: None (occurrence: None)
  Receive Date: 20100421
  Receipt Date: 20100415
  Transmission Date: 20101027
  Serious: Yes (Hospitalization)
  Sender: FDA-Public Use
  Company Number: TW-MERCK-1004TWN00040

PATIENT
  Age: 71 Year
  Sex: Female
  Weight: 62 kg

DRUGS (1)
  1. FOSAMAX PLUS D [Suspect]
     Indication: OSTEOPOROSIS
     Route: 048
     Dates: start: 20100225, end: 20100313

REACTIONS (1)
  - CEREBROVASCULAR ACCIDENT [None]
